FAERS Safety Report 10971947 (Version 1)
Quarter: 2015Q1

REPORT INFORMATION
  Report Type: Spontaneous
  Country: US (occurrence: None)
  Receive Date: 20150330
  Receipt Date: 20150330
  Transmission Date: 20150721
  Serious: Yes (Disabling)
  Sender: FDA-Public Use
  Company Number: None

PATIENT
  Age: 63 Year
  Sex: Female
  Weight: 58.97 kg

DRUGS (4)
  1. FLOPHENAZINE [Concomitant]
  2. FLUPHENAZINE [Concomitant]
     Active Substance: FLUPHENAZINE
  3. PREDNISONE. [Suspect]
     Active Substance: PREDNISONE
     Indication: RENAL TRANSPLANT
     Dosage: 1 TABLET BY MOUTH
     Route: 048
     Dates: start: 20150312, end: 20150313
  4. PROGRAF [Concomitant]
     Active Substance: TACROLIMUS\TACROLIMUS ANHYDROUS

REACTIONS (4)
  - Irritability [None]
  - Cognitive disorder [None]
  - Fistula [None]
  - Affective disorder [None]

NARRATIVE: CASE EVENT DATE: 20150313
